FAERS Safety Report 8695949 (Version 2)
Quarter: 2012Q4

REPORT INFORMATION
  Report Type: 
  Country: US (occurrence: US)
  Receive Date: 20120801
  Receipt Date: 20121004
  Transmission Date: 20130627
  Serious: Yes (Hospitalization)
  Sender: FDA-Public Use
  Company Number: US-BIOGENIDEC-2012BI027572

PATIENT
  Age: 48 Year
  Sex: Female

DRUGS (1)
  1. TYSABRI [Suspect]
     Indication: MULTIPLE SCLEROSIS
     Route: 042
     Dates: start: 20110511

REACTIONS (6)
  - Clostridium difficile infection [Unknown]
  - Hypoglycaemia [Unknown]
  - Convulsion [Unknown]
  - Diabetes mellitus [Unknown]
  - Anaemia [Unknown]
  - Wound abscess [Unknown]
